FAERS Safety Report 16485726 (Version 1)
Quarter: 2019Q2

REPORT INFORMATION
  Report Type: Spontaneous
  Country: US (occurrence: US)
  Receive Date: 20190517
  Receipt Date: 20190517
  Transmission Date: 20190711
  Serious: Yes (Other)
  Sender: FDA-Public Use
  Company Number: None

PATIENT
  Age: 71 Year
  Sex: Female

DRUGS (28)
  1. HUMIRA [Suspect]
     Active Substance: ADALIMUMAB
     Indication: RHEUMATOID ARTHRITIS
     Route: 058
     Dates: start: 20170608
  2. CALCIUM [Concomitant]
     Active Substance: CALCIUM
  3. CURCUMIN [Concomitant]
     Active Substance: CURCUMIN
  4. OMEPRAZOLE. [Concomitant]
     Active Substance: OMEPRAZOLE
  5. TRAVATAN [Concomitant]
     Active Substance: TRAVOPROST
  6. GINKGO BILOB [Concomitant]
  7. GLUCOSAMINE [Concomitant]
     Active Substance: GLUCOSAMINE
  8. COENZYME Q10 [Concomitant]
     Active Substance: UBIDECARENONE
  9. FISH OIL [Concomitant]
     Active Substance: FISH OIL
  10. FISH OIL [Concomitant]
     Active Substance: FISH OIL
  11. LUTEIN [Concomitant]
     Active Substance: LUTEIN
  12. FOLIC ACID. [Concomitant]
     Active Substance: FOLIC ACID
  13. FOLIC ACID. [Concomitant]
     Active Substance: FOLIC ACID
  14. ENBRREL SRCLK [Concomitant]
  15. DIFLUNISAL. [Concomitant]
     Active Substance: DIFLUNISAL
  16. VITAMIN C [Concomitant]
     Active Substance: ASCORBIC ACID
  17. SIMVASTATIN. [Concomitant]
     Active Substance: SIMVASTATIN
  18. SYNTHROID [Concomitant]
     Active Substance: LEVOTHYROXINE SODIUM
  19. LEVOTHYROXIN [Concomitant]
     Active Substance: LEVOTHYROXINE
  20. METFORMIN [Concomitant]
     Active Substance: METFORMIN HYDROCHLORIDE
  21. VITAMIN C [Concomitant]
     Active Substance: ASCORBIC ACID
  22. DETROL LA [Concomitant]
     Active Substance: TOLTERODINE TARTRATE
  23. VITAMIN D [Concomitant]
     Active Substance: VITAMIN D NOS
     Indication: RHEUMATOID ARTHRITIS
     Route: 058
     Dates: start: 20170608
  24. TOLTERODINE [Concomitant]
     Active Substance: TOLTERODINE
  25. MULTIVITAMIN LIQ [Concomitant]
  26. LUTEIN [Concomitant]
     Active Substance: LUTEIN
  27. MULTIVITAL [Concomitant]
  28. METHOTREXATE. [Concomitant]
     Active Substance: METHOTREXATE

REACTIONS (3)
  - Urinary tract infection [None]
  - Therapy cessation [None]
  - Transient ischaemic attack [None]

NARRATIVE: CASE EVENT DATE: 201904
